FAERS Safety Report 5571313-5 (Version None)
Quarter: 2007Q4

REPORT INFORMATION
  Report Type: 
  Country: None (occurrence: None)
  Receive Date: 20071221
  Receipt Date: 20070907
  Transmission Date: 20080405
  Serious: No
  Sender: FDA-Public Use
  Company Number: A0658260A

PATIENT
  Age: 74 Year
  Sex: Female

DRUGS (3)
  1. FLUTICASONE PROPIONATE [Suspect]
     Dosage: 1SPR AT NIGHT
     Route: 045
     Dates: start: 20070614, end: 20070618
  2. FLONASE [Concomitant]
     Route: 045
  3. MULTIPLE MEDICATIONS [Concomitant]

REACTIONS (6)
  - CHEILITIS [None]
  - EPISTAXIS [None]
  - NASAL DISCOMFORT [None]
  - PHARMACEUTICAL PRODUCT COMPLAINT [None]
  - SCAB [None]
  - SINUS CONGESTION [None]
